FAERS Safety Report 21511589 (Version 2)
Quarter: 2022Q4

REPORT INFORMATION
  Report Type: Spontaneous
  Country: CH (occurrence: CH)
  Receive Date: 20221027
  Receipt Date: 20221203
  Transmission Date: 20230112
  Serious: Yes (Hospitalization, Other)
  Sender: FDA-Public Use
  Company Number: CH-NOVOPROD-970980

PATIENT
  Age: 72 Year
  Sex: Female
  Weight: 93.7 kg

DRUGS (32)
  1. OZEMPIC [Suspect]
     Active Substance: SEMAGLUTIDE
     Dosage: FIXDOSE 4MG/3 ML, 3M/WEEK
     Route: 058
     Dates: start: 20220920
  2. OZEMPIC [Suspect]
     Active Substance: SEMAGLUTIDE
     Indication: Type 2 diabetes mellitus
     Dosage: 1 MG, QW
     Route: 058
     Dates: start: 202102
  3. OZEMPIC [Suspect]
     Active Substance: SEMAGLUTIDE
     Dosage: DUALDOSE 2MG/1.5ML, QW
     Route: 058
     Dates: start: 20210305
  4. INDAPAMID SPIRIG HC [Concomitant]
     Indication: Product used for unknown indication
     Dosage: 1 DAILY (MORNING)
     Dates: start: 20200624
  5. ASPIRIN [Concomitant]
     Active Substance: ASPIRIN
     Indication: Anticoagulant therapy
     Dosage: 1 DAILY (MORNING)
     Dates: start: 20200624
  6. ELTROXIN LF [Concomitant]
     Dosage: 0.5 MG TUE/THUR/SA/SU ADDITIONAL TO 0.1
     Dates: start: 20210307
  7. ELTROXIN LF [Concomitant]
     Indication: Product used for unknown indication
     Dosage: 2 TBL. 0.1 MG MON/MI/FRI
     Dates: start: 20210121, end: 20210307
  8. SODIUM CHONDROITIN SULFATE [Concomitant]
     Active Substance: SODIUM CHONDROITIN SULFATE
     Indication: Osteoarthritis
     Dosage: 800 MG, QD (MORNING)
     Dates: start: 20200624
  9. LERCANIDIPINA MEPHA [Concomitant]
     Indication: Product used for unknown indication
     Dosage: 20 MG DAILY (EVENING)
     Dates: start: 20200713
  10. TRAZODONE HYDROCHLORIDE [Concomitant]
     Active Substance: TRAZODONE HYDROCHLORIDE
     Indication: Sleep disorder
     Dosage: 1 DAILY (AT NIGHT)
     Dates: start: 20210121
  11. CANDESARTAN [Concomitant]
     Active Substance: CANDESARTAN
     Indication: Product used for unknown indication
     Dosage: 1 DAILY (MORNING AND EVENING)
     Dates: start: 20200818
  12. CHOLECALCIFEROL [Concomitant]
     Active Substance: CHOLECALCIFEROL
     Indication: Prophylaxis
     Dosage: 3 ML, QW
     Dates: start: 20210121
  13. OMEPRAZOLE [Concomitant]
     Active Substance: OMEPRAZOLE
     Indication: Product used for unknown indication
     Dosage: CHANGE FROM 20 MG TO 40 MG
     Dates: start: 20210305
  14. METFORMIN HYDROCHLORIDE [Concomitant]
     Active Substance: METFORMIN HYDROCHLORIDE
     Indication: Type 2 diabetes mellitus
     Dosage: 1 DAILY (MORNING AND EVENING)
     Dates: start: 20201006
  15. NOVORAPID [Concomitant]
     Active Substance: INSULIN ASPART
     Indication: Type 2 diabetes mellitus
     Dosage: UNK
     Route: 058
     Dates: start: 20210119
  16. EZETIMIB ROSUVASTATIN MEPHA [Concomitant]
     Indication: Product used for unknown indication
     Dosage: 1 DAILY (MORNING)
     Dates: start: 20210216
  17. DAFALGAN [Concomitant]
     Active Substance: ACETAMINOPHEN
     Indication: Pain
     Dosage: MAX. 4 TABL. A DAY
     Dates: start: 20200713
  18. DAFALGAN [Concomitant]
     Active Substance: ACETAMINOPHEN
     Dosage: 1 DAILY (MORNING, LUNCH, EVENING, NIGHT)
     Dates: start: 20211012
  19. NITROGLYCERIN [Concomitant]
     Active Substance: NITROGLYCERIN
     Indication: Cardiac disorder
     Dosage: UNK
     Dates: start: 20201130
  20. AMLODIPINE [Concomitant]
     Active Substance: AMLODIPINE BESYLATE
     Indication: Hypertension
     Dosage: 1 DAILY (MORNING)
     Dates: start: 20220920
  21. ELIQUIS [Concomitant]
     Active Substance: APIXABAN
     Indication: Anticoagulant therapy
     Dosage: 1 DAILY (MORNING)
     Dates: start: 20220916
  22. EUTHYROX [Concomitant]
     Active Substance: LEVOTHYROXINE SODIUM
     Indication: Thyroid disorder
     Dosage: 1 DAILY (30 MIN. BEFORE EATING, MORNING)
     Dates: start: 20220920
  23. EZETIMIB SANDOZ [Concomitant]
     Indication: Blood cholesterol abnormal
     Dosage: 1 DAILY (MORNING), AFTERWARDS EZETIMIB ROSUVASTATIN
     Dates: start: 20220920
  24. TRANSIPEG [MACROGOL 3350;POTASSIUM CHLORIDE;SODIUM BICARBONATE;SODIUM [Concomitant]
     Indication: Dyspepsia
     Dosage: 1 DAILY (MORNING)
     Dates: start: 20220131
  25. LORAZEPAM [Concomitant]
     Active Substance: LORAZEPAM
     Indication: Product used for unknown indication
     Dosage: IN RESERE 0.5 - 1 TABL
     Dates: start: 20220405
  26. LAMICTAL [Concomitant]
     Active Substance: LAMOTRIGINE
     Dosage: 2-0-1, ACCORDING SCHEDULE
     Dates: start: 20220930
  27. LAMICTAL [Concomitant]
     Active Substance: LAMOTRIGINE
     Indication: Product used for unknown indication
     Dosage: 1 DAILY (MORNING, EVENING)
     Dates: start: 20220920, end: 20220930
  28. LEVETIRACETAM [Concomitant]
     Active Substance: LEVETIRACETAM
     Indication: Epilepsy
     Dosage: 1 DAILY (MORNING, EVENING)
     Dates: start: 20220920
  29. IRON POLYMALTOSE [Concomitant]
     Active Substance: IRON POLYMALTOSE
     Indication: Mineral supplementation
     Dosage: 20 DAILY (EVENING)
     Dates: start: 20220920
  30. METOPROLOL SUCCINATE [Concomitant]
     Active Substance: METOPROLOL SUCCINATE
     Indication: Atrial fibrillation
     Dosage: 1 DAILY (EVENING), FOR FAST PULSE 1 TBL IN ADDITION
     Dates: start: 20220920
  31. PANTOPRAZOLE SODIUM [Concomitant]
     Active Substance: PANTOPRAZOLE SODIUM
     Indication: Prophylaxis
     Dosage: 1 DAILY (MORNING), 30 MIN BEFORE EATING.
     Dates: start: 20220429
  32. ROSUVASTATIN CALCIUM [Concomitant]
     Active Substance: ROSUVASTATIN CALCIUM
     Indication: Blood cholesterol abnormal
     Dosage: 1 DAILY (MORNING), AFTERWARDS EZETIMIB ROSUVASTATIN
     Dates: start: 20220920

REACTIONS (1)
  - Cerebrovascular accident [Unknown]

NARRATIVE: CASE EVENT DATE: 20220305
